FAERS Safety Report 10966486 (Version 3)
Quarter: 2016Q4

REPORT INFORMATION
  Report Type: Spontaneous
  Country: US (occurrence: US)
  Receive Date: 20150330
  Receipt Date: 20161026
  Transmission Date: 20170206
  Serious: Yes (Other)
  Sender: FDA-Public Use
  Company Number: US-PFIZER INC-2015104710

PATIENT
  Age: 57 Year
  Sex: Male

DRUGS (29)
  1. NORVASC [Concomitant]
     Active Substance: AMLODIPINE BESYLATE
     Dosage: 5 MG, DAILY
     Route: 048
     Dates: start: 20160908
  2. QUESTRAN [Concomitant]
     Active Substance: CHOLESTYRAMINE
     Indication: DIARRHOEA
     Dosage: 4 G, AS NEEDED [1 SCOOP TWICE A DAY AS NEEDED]
     Route: 048
     Dates: start: 20160920
  3. ERYTHROMYCIN. [Concomitant]
     Active Substance: ERYTHROMYCIN
     Dosage: APPLY A SMALL AMOUNT OF OINTMENT TO AFFECTED EYE(S) 4 TIMES DAILY AND AT BED TIME
     Route: 047
     Dates: start: 20160805
  4. PREDNISONE. [Concomitant]
     Active Substance: PREDNISONE
     Dosage: 5 MG, UNK
     Route: 048
     Dates: start: 20160229
  5. RENA-VITE [Concomitant]
     Active Substance: ASCORBIC ACID\BIOTIN\CALCIUM PANTOTHENATE\CYANOCOBALAMIN\FOLIC ACID\NIACINAMIDE\PYRIDOXINE HYDROCHLORIDE\RIBOFLAVIN\THIAMINE MONONITRATE
     Dosage: 1 DF, DAILY
     Route: 048
     Dates: start: 20120404
  6. LYRICA [Suspect]
     Active Substance: PREGABALIN
     Indication: DIABETIC NEUROPATHY
     Dosage: 100 MG, 3X/DAY
     Route: 048
     Dates: start: 20060828
  7. ASPIRIN. [Concomitant]
     Active Substance: ASPIRIN
     Dosage: 81 MG, UNK
     Dates: start: 20131202
  8. L-METHYLFOLATE [Concomitant]
     Dosage: 1 DF, DAILY (L-METHYLFOLATE B6(1.13 MG), L-METHYLFOLATE B12 (25-2 MG)
     Route: 048
     Dates: start: 20101010
  9. SINGULAIR [Concomitant]
     Active Substance: MONTELUKAST SODIUM
     Dosage: 10 MG, DAILY
     Route: 048
     Dates: start: 20050202
  10. PROAIR RESPICLICK [Concomitant]
     Active Substance: ALBUTEROL SULFATE
     Dosage: UNK
     Route: 055
     Dates: start: 20160805
  11. BACLOFEN. [Concomitant]
     Active Substance: BACLOFEN
     Dosage: 10 MG, 3X/DAY
     Route: 048
     Dates: start: 20160315
  12. COLACE [Concomitant]
     Active Substance: DOCUSATE SODIUM
     Dosage: 100 MG, UNK
     Route: 048
     Dates: start: 20140918
  13. NEXIUM [Concomitant]
     Active Substance: ESOMEPRAZOLE MAGNESIUM
     Dosage: 40 MG, 2X/DAY
     Route: 048
     Dates: start: 20100819
  14. LEVOTHYROXINE SODIUM. [Concomitant]
     Active Substance: LEVOTHYROXINE SODIUM
     Dosage: 137 UG, DAILY
     Route: 048
     Dates: start: 20080425
  15. OXYCODONE HYDROCHLORIDE. [Concomitant]
     Active Substance: OXYCODONE HYDROCHLORIDE
     Dosage: UNK
     Route: 048
     Dates: start: 20160315
  16. LANTUS SOLOSTAR [Concomitant]
     Active Substance: INSULIN GLARGINE
     Dosage: 30 UNITS IN THE AM AND 45 UNITS IN PM
     Route: 058
     Dates: start: 20110602
  17. AZELASTINE HCL [Concomitant]
     Active Substance: AZELASTINE HYDROCHLORIDE
     Dosage: 2 GTT, 2X/DAY [0.05% OPHTHALMIC SOLUTION AT 1 DROP IN BOTH EYES EVERY 12 HOURS DAILY]
     Route: 047
     Dates: start: 20160804
  18. HUMALOG [Concomitant]
     Active Substance: INSULIN LISPRO
     Dosage: 23 UNIT W/ BREAKFAST + 18 UNIT OTHER MEALS]
     Route: 058
     Dates: start: 20160719
  19. LOMOTIL [Concomitant]
     Active Substance: ATROPINE SULFATE\DIPHENOXYLATE HYDROCHLORIDE
     Dosage: 2 DF 4 TIMES DAILY AS NEEDED
     Route: 048
     Dates: start: 20160920
  20. BUMETANIDE. [Concomitant]
     Active Substance: BUMETANIDE
     Dosage: 2 MG, UNK
     Route: 048
     Dates: start: 20160201
  21. LIQUITEARS [Concomitant]
     Active Substance: POLYVINYL ALCOHOL
     Dosage: 1-2 DROPS IN TO AFFECTED EYES 4 TIMES DAILY AS DIRECTED
     Route: 047
     Dates: start: 20140311
  22. TAMSULOSIN HCL [Concomitant]
     Active Substance: TAMSULOSIN
     Dosage: 0.4 MG, 2X/DAY
     Route: 048
     Dates: start: 20160229
  23. ZOFRAN [Concomitant]
     Active Substance: ONDANSETRON HYDROCHLORIDE
     Dosage: 8 MG, UNK
     Route: 048
     Dates: start: 20141209
  24. LIDOCAINE AND PRILOCAINE [Concomitant]
     Active Substance: LIDOCAINE\PRILOCAINE
     Dosage: UNK
     Dates: start: 20120529
  25. ADVAIR HFA [Concomitant]
     Active Substance: FLUTICASONE PROPIONATE\SALMETEROL XINAFOATE
     Dosage: 250-50 MCG/DOSE 1 PUFFS TWICE DAILY
     Route: 055
     Dates: start: 20100830
  26. FLONASE [Concomitant]
     Active Substance: FLUTICASONE PROPIONATE
     Dosage: 50MCG/ACT, 2 SPRAYS IN EACH NOSTRIL EACH DAY
     Route: 045
     Dates: start: 20130415
  27. PROVIGIL [Concomitant]
     Active Substance: MODAFINIL
     Dosage: 200 MG, DAILY
     Route: 048
     Dates: start: 20120911
  28. PRAVASTATIN SODIUM. [Concomitant]
     Active Substance: PRAVASTATIN SODIUM
     Dosage: 80 MG, DAILY
     Route: 048
     Dates: start: 20160201
  29. STENDRA [Concomitant]
     Active Substance: AVANAFIL
     Dosage: 200 MG A DAY, AS NEEDED
     Route: 048
     Dates: start: 20151215

REACTIONS (3)
  - Renal disorder [Unknown]
  - Hypoacusis [Unknown]
  - Drug effect incomplete [Unknown]
